FAERS Safety Report 17026847 (Version 3)
Quarter: 2019Q4

REPORT INFORMATION
  Report Type: Spontaneous
  Country: TW (occurrence: TW)
  Receive Date: 20191113
  Receipt Date: 20191206
  Transmission Date: 20200122
  Serious: Yes (Death, Other)
  Sender: FDA-Public Use
  Company Number: TW-AMGEN-TWNSP2019185464

PATIENT
  Age: 63 Year
  Sex: Male

DRUGS (3)
  1. XGEVA [Suspect]
     Active Substance: DENOSUMAB
     Indication: PROPHYLAXIS
  2. XGEVA [Suspect]
     Active Substance: DENOSUMAB
     Indication: METASTASES TO BONE
     Dosage: 120 MILLIGRAM, QMO
     Route: 065
     Dates: start: 201511, end: 201609
  3. CLODRONATE [Concomitant]
     Active Substance: CLODRONATE DISODIUM

REACTIONS (4)
  - Multiple organ dysfunction syndrome [Fatal]
  - Metastases to bone [Unknown]
  - Osteonecrosis of jaw [Recovering/Resolving]
  - Sepsis [Fatal]
